FAERS Safety Report 4541040-1 (Version None)
Quarter: 2004Q4

REPORT INFORMATION
  Report Type: 
  Country: None (occurrence: None)
  Receive Date: 20041228
  Receipt Date: 20041222
  Transmission Date: 20050328
  Serious: Yes (Death)
  Sender: FDA-Public Use
  Company Number: 200413442GDS

PATIENT
  Age: 89 Year
  Sex: Male

DRUGS (18)
  1. ASPIRIN [Suspect]
     Dosage: 100 MG, TOTAL DAILY, ORAL
     Route: 048
  2. PREDNISONE [Suspect]
     Dosage: 15 MG, TOTAL DAILY, ORAL
     Route: 048
     Dates: end: 20041119
  3. MAGNESIUM DIASPORAL [Concomitant]
  4. CORVATON [Concomitant]
  5. BELOC [Concomitant]
  6. ZURCAL [Concomitant]
  7. BLOPRESS [Concomitant]
  8. DIAMICRON [Concomitant]
  9. METFORMIN HCL [Concomitant]
  10. PRACTO-CLYSS [Concomitant]
  11. RUDOLAC [Concomitant]
  12. EPREX /SCH/ [Concomitant]
  13. ENOXAPARIN SODIUM [Concomitant]
  14. MORPHIN HCL [Concomitant]
  15. AUGMENTIN '125' [Concomitant]
  16. TOREM /SCH/ [Concomitant]
  17. DISTRANEURIN [Concomitant]
  18. NITRODERM [Concomitant]

REACTIONS (1)
  - INTESTINAL PERFORATION [None]
